FAERS Safety Report 8521522-8 (Version None)
Quarter: 2012Q3

REPORT INFORMATION
  Report Type: 
  Country: None (occurrence: None)
  Receive Date: 20120719
  Receipt Date: 20120712
  Transmission Date: 20120928
  Serious: Yes (Other)
  Sender: FDA-Public Use
  Company Number: PHEH2012US012209

PATIENT
  Age: 51 Year
  Sex: Male

DRUGS (6)
  1. MARINOL [Concomitant]
  2. TASIGNA [Suspect]
     Indication: LEUKAEMIA
     Dosage: 800 MG, QD
     Route: 048
     Dates: start: 20111118
  3. TASIGNA [Suspect]
     Dosage: 600 MG, QD
     Route: 048
  4. SKELAXIN [Concomitant]
  5. OXYCODONE HCL [Concomitant]
  6. XANAX [Concomitant]

REACTIONS (5)
  - MYALGIA [None]
  - ARTHRALGIA [None]
  - BACK PAIN [None]
  - HEPATITIS C [None]
  - MUSCLE SPASMS [None]
